FAERS Safety Report 5672337-X (Version None)
Quarter: 2008Q1

REPORT INFORMATION
  Report Type: 
  Country: None (occurrence: None)
  Receive Date: 20080317
  Receipt Date: 20080303
  Transmission Date: 20080703
  Serious: Yes (Hospitalization)
  Sender: FDA-Public Use
  Company Number: 1-15854922

PATIENT
  Sex: Male
  Weight: 93.8946 kg

DRUGS (13)
  1. FENTANYL [Suspect]
     Indication: CROHN'S DISEASE
     Dosage: 50MCG/HR EVERY 72 HRS, TRANSDERMAL
     Route: 062
     Dates: start: 20070901
  2. FENTANYL [Suspect]
     Indication: NEOPLASM MALIGNANT
     Dosage: 50MCG/HR EVERY 72 HRS, TRANSDERMAL
     Route: 062
     Dates: start: 20070901
  3. FENTANYL [Suspect]
     Indication: CROHN'S DISEASE
     Dosage: 25MCG/HR EVERY 72 HRS, TRANSDERMAL
     Route: 062
     Dates: start: 20070901
  4. FENTANYL [Suspect]
     Indication: NEOPLASM MALIGNANT
     Dosage: 25MCG/HR EVERY 72 HRS, TRANSDERMAL
     Route: 062
     Dates: start: 20070901
  5. PENTASA [Concomitant]
  6. PROPRANOLOL [Concomitant]
  7. PROTONIX [Concomitant]
  8. LEXAPRO [Concomitant]
  9. WELLBUTRIN [Concomitant]
  10. ALDACTONE [Concomitant]
  11. LASIX [Concomitant]
  12. OXYCODONE HCL [Concomitant]
  13. LACTULOSE [Concomitant]

REACTIONS (9)
  - BLOOD PRESSURE DECREASED [None]
  - BRADYPHRENIA [None]
  - CONFUSIONAL STATE [None]
  - DELUSION [None]
  - DISORIENTATION [None]
  - JAUNDICE [None]
  - LETHARGY [None]
  - RESPIRATORY RATE DECREASED [None]
  - VIRAL INFECTION [None]
